FAERS Safety Report 25204983 (Version 1)
Quarter: 2025Q2

REPORT INFORMATION
  Report Type: Spontaneous
  Country: US (occurrence: US)
  Receive Date: 20250416
  Receipt Date: 20250416
  Transmission Date: 20250716
  Serious: No
  Sender: SANDOZ
  Company Number: US-SANDOZ-SDZ2025US023672

PATIENT
  Sex: Male

DRUGS (2)
  1. TACROLIMUS [Suspect]
     Active Substance: TACROLIMUS
     Indication: Product used for unknown indication
     Route: 065
  2. REZUROCK [Concomitant]
     Active Substance: BELUMOSUDIL
     Indication: Acute graft versus host disease
     Dosage: 200 MG, BID
     Route: 065
     Dates: start: 20250115

REACTIONS (1)
  - Drug hypersensitivity [Unknown]
